FAERS Safety Report 17143071 (Version 1)
Quarter: 2019Q4

REPORT INFORMATION
  Report Type: Spontaneous
  Country: US (occurrence: US)
  Receive Date: 20191211
  Receipt Date: 20191211
  Transmission Date: 20200122
  Serious: No
  Sender: FDA-Public Use
  Company Number: US-TARO-2019TAR00278

PATIENT
  Sex: Male

DRUGS (1)
  1. CLOBETASOL PROPIONATE TOPICAL SOLUTION USP 0.05% [Suspect]
     Active Substance: CLOBETASOL PROPIONATE
     Dosage: UNK
     Dates: start: 20190314

REACTIONS (3)
  - Faeces discoloured [Not Recovered/Not Resolved]
  - Frequent bowel movements [Not Recovered/Not Resolved]
  - Incorrect product administration duration [Not Recovered/Not Resolved]

NARRATIVE: CASE EVENT DATE: 2019
